FAERS Safety Report 16208478 (Version 2)
Quarter: 2019Q4

REPORT INFORMATION
  Report Type: Spontaneous
  Country: US (occurrence: US)
  Receive Date: 20190417
  Receipt Date: 20191218
  Transmission Date: 20200122
  Serious: Yes (Life-Threatening, Hospitalization)
  Sender: FDA-Public Use
  Company Number: US-JNJFOC-20190415598

PATIENT
  Age: 70 Year
  Sex: Male

DRUGS (4)
  1. XARELTO [Suspect]
     Active Substance: RIVAROXABAN
     Indication: PRODUCT USED FOR UNKNOWN INDICATION
     Route: 048
     Dates: start: 20150913, end: 20180211
  2. ELIQUIS [Suspect]
     Active Substance: APIXABAN
     Indication: EPISTAXIS
     Route: 065
  3. ELIQUIS [Suspect]
     Active Substance: APIXABAN
     Indication: URETHRAL HAEMORRHAGE
  4. ASPIRIN. [Suspect]
     Active Substance: ASPIRIN

REACTIONS (5)
  - Shock haemorrhagic [Recovering/Resolving]
  - Urethral haemorrhage [Recovered/Resolved]
  - Renal tubular necrosis [Unknown]
  - Upper gastrointestinal haemorrhage [Unknown]
  - Epistaxis [Recovered/Resolved]

NARRATIVE: CASE EVENT DATE: 20180212
